FAERS Safety Report 4903740-0 (Version None)
Quarter: 2006Q1

REPORT INFORMATION
  Report Type: 
  Country: None (occurrence: None)
  Receive Date: 20060208
  Receipt Date: 20060127
  Transmission Date: 20060701
  Serious: Yes (Hospitalization)
  Sender: FDA-Public Use
  Company Number: US-AMGEN-US166669

PATIENT
  Sex: Female

DRUGS (13)
  1. EPOGEN [Suspect]
     Indication: DIALYSIS
     Dates: start: 20031201, end: 20051230
  2. LIPITOR [Concomitant]
  3. NEPHRO-CAPS [Concomitant]
  4. CARDIZEM CD [Concomitant]
  5. CATAPRES [Concomitant]
  6. AVAPRO [Concomitant]
  7. LOPRESSOR [Concomitant]
  8. COUMADIN [Concomitant]
  9. PRILOSEC [Concomitant]
  10. NITRO-SPRAY [Concomitant]
  11. AMBIEN [Concomitant]
  12. DARVOCET-N 50 [Concomitant]
  13. ATIVAN [Concomitant]

REACTIONS (5)
  - CONVULSION [None]
  - HOSPITALISATION [None]
  - HYPERTENSION [None]
  - HYPERTENSIVE ENCEPHALOPATHY [None]
  - MENTAL STATUS CHANGES [None]
